FAERS Safety Report 10416596 (Version 4)
Quarter: 2018Q2

REPORT INFORMATION
  Report Type: Report from Study
  Country: TW (occurrence: TW)
  Receive Date: 20140828
  Receipt Date: 20180531
  Transmission Date: 20180711
  Serious: Yes (Death)
  Sender: FDA-Public Use
  Company Number: PHHY2014TW107600

PATIENT
  Age: 52 Year
  Sex: Female
  Weight: 58 kg

DRUGS (6)
  1. PARAMOL [Concomitant]
     Indication: HEADACHE
     Dosage: 2000 MG, UNK
     Route: 065
     Dates: start: 20140724
  2. ALLOPURINOL. [Concomitant]
     Active Substance: ALLOPURINOL
     Indication: PROPHYLAXIS
     Dosage: 300 MG, QD
     Route: 048
     Dates: start: 20140822
  3. SYNORID [Concomitant]
     Indication: CHRONIC MYELOID LEUKAEMIA
     Dosage: 100 MG, UNK
     Route: 048
     Dates: start: 20140707, end: 20140721
  4. TASIGNA [Suspect]
     Active Substance: NILOTINIB
     Indication: CHRONIC MYELOID LEUKAEMIA
     Dosage: 600 MG, UNK
     Route: 048
     Dates: start: 20140718, end: 20140822
  5. HYDREA [Concomitant]
     Active Substance: HYDROXYUREA
     Indication: CHRONIC MYELOID LEUKAEMIA
     Dosage: 1000 MG, UNK
     Route: 048
     Dates: start: 20140707, end: 20140720
  6. EPINEPHRINE. [Concomitant]
     Active Substance: EPINEPHRINE
     Indication: CARDIAC ARREST
     Dosage: 10 MG, QD
     Route: 065
     Dates: start: 20140824, end: 20140825

REACTIONS (8)
  - Blast crisis in myelogenous leukaemia [Fatal]
  - Vomiting [Fatal]
  - Cardiac arrest [Fatal]
  - Disseminated intravascular coagulation [Fatal]
  - Cerebral haemorrhage [Fatal]
  - Nausea [Fatal]
  - Hyperleukocytosis [Fatal]
  - Bone pain [Fatal]

NARRATIVE: CASE EVENT DATE: 20140819
